FAERS Safety Report 6280283-6 (Version None)
Quarter: 2009Q3

REPORT INFORMATION
  Report Type: 
  Country: None (occurrence: None)
  Receive Date: 20090723
  Receipt Date: 20090709
  Transmission Date: 20100115
  Serious: Yes (Hospitalization)
  Sender: FDA-Public Use
  Company Number: US-ASTRAZENECA-2009UW20402

PATIENT
  Sex: Male

DRUGS (2)
  1. SEROQUEL XR [Suspect]
     Route: 048
     Dates: start: 20070101, end: 20080101
  2. SEROQUEL XR [Suspect]
     Route: 048
     Dates: start: 20080101

REACTIONS (1)
  - ATRIOVENTRICULAR BLOCK [None]
